FAERS Safety Report 4874150-X (Version None)
Quarter: 2006Q1

REPORT INFORMATION
  Report Type: 
  Country: None (occurrence: None)
  Receive Date: 20060106
  Receipt Date: 20050616
  Transmission Date: 20060701
  Serious: Yes (Other)
  Sender: FDA-Public Use
  Company Number: JP-GLAXOSMITHKLINE-B0384972A

PATIENT
  Age: 58 Year
  Sex: Male

DRUGS (4)
  1. RETROVIR [Suspect]
     Indication: HIV INFECTION
     Route: 048
  2. INDINAVIR SULFATE [Suspect]
     Indication: HIV INFECTION
     Route: 048
  3. EPIVIR [Suspect]
     Indication: HIV INFECTION
     Route: 048
  4. NELFINAVIR MESYLATE [Suspect]
     Indication: HIV INFECTION
     Route: 048

REACTIONS (3)
  - BLOOD CREATININE DECREASED [None]
  - BLOOD PRESSURE ABNORMAL [None]
  - RENAL IMPAIRMENT [None]
